FAERS Safety Report 25449724 (Version 2)
Quarter: 2025Q3

REPORT INFORMATION
  Report Type: Spontaneous
  Country: BR (occurrence: BR)
  Receive Date: 20250618
  Receipt Date: 20250818
  Transmission Date: 20251020
  Serious: Yes (Other)
  Sender: BAXTER
  Company Number: BR-BAXTER-2025BAX016541

PATIENT
  Age: 19 Year
  Sex: Female

DRUGS (2)
  1. IRON [Suspect]
     Active Substance: IRON
     Indication: Iron deficiency anaemia
     Route: 042
     Dates: start: 20250529, end: 20250529
  2. SODIUM CHLORIDE [Suspect]
     Active Substance: SODIUM CHLORIDE
     Indication: Medication dilution
     Route: 042
     Dates: start: 20250529, end: 20250529

REACTIONS (11)
  - Skin plaque [Recovered/Resolved]
  - Chest discomfort [Recovered/Resolved]
  - Hyperaemia [Recovered/Resolved]
  - Oedema peripheral [Recovered/Resolved]
  - Tachycardia [Recovered/Resolved]
  - Diarrhoea [Recovered/Resolved]
  - Nausea [Recovered/Resolved]
  - Dyspnoea [Recovered/Resolved]
  - Hypotension [Recovered/Resolved]
  - Pruritus [Recovered/Resolved]
  - Treatment noncompliance [Unknown]

NARRATIVE: CASE EVENT DATE: 20250529
